FAERS Safety Report 13986668 (Version 6)
Quarter: 2020Q1

REPORT INFORMATION
  Report Type: Report from Study
  Country: JP (occurrence: JP)
  Receive Date: 20170919
  Receipt Date: 20200117
  Transmission Date: 20200409
  Serious: Yes (Life-Threatening, Hospitalization)
  Sender: FDA-Public Use
  Company Number: JP-ACTELION-A-CH2017-159492

PATIENT
  Age: 39 Year
  Sex: Female
  Weight: 55.5 kg

DRUGS (10)
  1. BERASUS [Suspect]
     Active Substance: BERAPROST SODIUM
     Indication: PULMONARY ARTERIAL HYPERTENSION
     Dosage: 60 ?G, BID
     Route: 048
     Dates: start: 20161122, end: 20170111
  2. FERROUS SULFATE. [Concomitant]
     Active Substance: FERROUS SULFATE
  3. MUCOSTA [Concomitant]
     Active Substance: REBAMIPIDE
  4. UPTRAVI [Suspect]
     Active Substance: SELEXIPAG
     Indication: PULMONARY ARTERIAL HYPERTENSION
     Dosage: 0.2 MG, BID
     Route: 048
     Dates: start: 20170325, end: 20170409
  5. TREPROST [Suspect]
     Active Substance: TREPROSTINIL
     Dosage: 100 NG/KG, PER MIN
     Route: 058
  6. PRIMPERAN [Concomitant]
     Active Substance: METOCLOPRAMIDE HYDROCHLORIDE
  7. OPSUMIT [Suspect]
     Active Substance: MACITENTAN
     Indication: PULMONARY ARTERIAL HYPERTENSION
     Dosage: 10 MG, QD
     Route: 048
     Dates: start: 20160816
  8. TREPROST [Suspect]
     Active Substance: TREPROSTINIL
     Dosage: 50 TO 100 NG/KG/MIN
     Route: 058
  9. TREPROST [Suspect]
     Active Substance: TREPROSTINIL
     Indication: PULMONARY ARTERIAL HYPERTENSION
     Dosage: 3.5 ?L, Q1HOUR
     Route: 058
     Dates: start: 20170412
  10. ADEMPAS [Concomitant]
     Active Substance: RIOCIGUAT

REACTIONS (8)
  - Lymphadenopathy [Recovering/Resolving]
  - Dyspnoea paroxysmal nocturnal [Recovered/Resolved]
  - Chest pain [Recovered/Resolved]
  - Diarrhoea [Recovering/Resolving]
  - Injection site erythema [Recovering/Resolving]
  - Pulmonary tuberculosis [Recovered/Resolved]
  - Urticaria [Recovering/Resolving]
  - Injection site pain [Recovering/Resolving]

NARRATIVE: CASE EVENT DATE: 20161220
